FAERS Safety Report 13919618 (Version 1)
Quarter: 2017Q3

REPORT INFORMATION
  Report Type: Spontaneous
  Country: KW (occurrence: KW)
  Receive Date: 20170830
  Receipt Date: 20170830
  Transmission Date: 20171127
  Serious: Yes (Other)
  Sender: FDA-Public Use
  Company Number: KW-SUN PHARMACEUTICAL INDUSTRIES LTD-2017RR-148594

PATIENT
  Age: 9 Year
  Sex: Male

DRUGS (13)
  1. VALPROIC ACID. [Suspect]
     Active Substance: VALPROIC ACID
     Indication: AUTISM SPECTRUM DISORDER
     Dosage: UNK
     Route: 065
  2. NALTREXONE [Suspect]
     Active Substance: NALTREXONE
     Indication: INTELLECTUAL DISABILITY
     Dosage: 25 MG, EVERY OTHER DAY
     Route: 065
  3. CLONIDINE. [Suspect]
     Active Substance: CLONIDINE
     Indication: INTELLECTUAL DISABILITY
     Dosage: 300 ?G, DAILY
     Route: 065
  4. CLONAZEPAM. [Suspect]
     Active Substance: CLONAZEPAM
     Indication: AUTISM SPECTRUM DISORDER
  5. ARIPIPRAZOLE. [Suspect]
     Active Substance: ARIPIPRAZOLE
     Indication: AUTISM SPECTRUM DISORDER
     Dosage: 15 MG, DAILY
     Route: 065
  6. NALTREXONE [Suspect]
     Active Substance: NALTREXONE
     Indication: AUTISM SPECTRUM DISORDER
  7. LITHIUM. [Suspect]
     Active Substance: LITHIUM
     Indication: INTELLECTUAL DISABILITY
     Dosage: 800 MG, DAILY
     Route: 065
  8. CLONIDINE. [Suspect]
     Active Substance: CLONIDINE
     Indication: AUTISM SPECTRUM DISORDER
  9. LITHIUM. [Suspect]
     Active Substance: LITHIUM
     Indication: AUTISM SPECTRUM DISORDER
  10. CLONAZEPAM. [Suspect]
     Active Substance: CLONAZEPAM
     Indication: INTELLECTUAL DISABILITY
     Dosage: 1 MG, DAILY
     Route: 065
  11. VALPROIC ACID. [Suspect]
     Active Substance: VALPROIC ACID
     Indication: INTELLECTUAL DISABILITY
     Route: 065
  12. ARIPIPRAZOLE. [Suspect]
     Active Substance: ARIPIPRAZOLE
     Indication: INTELLECTUAL DISABILITY
     Dosage: 15 MG, DAILY
     Route: 065
  13. ARIPIPRAZOLE. [Suspect]
     Active Substance: ARIPIPRAZOLE
     Dosage: 15 MG, DAILY
     Route: 065

REACTIONS (7)
  - Liver function test increased [Unknown]
  - Drug ineffective [Unknown]
  - Weight increased [Unknown]
  - Bradycardia [Unknown]
  - Salivary hypersecretion [Unknown]
  - Tremor [Unknown]
  - Muscle rigidity [Unknown]
